FAERS Safety Report 9719377 (Version 1)
Quarter: 2013Q4

REPORT INFORMATION
  Report Type: Report from Study
  Country: US (occurrence: US)
  Receive Date: 20131128
  Receipt Date: 20131128
  Transmission Date: 20140711
  Serious: Yes (Other)
  Sender: FDA-Public Use
  Company Number: US-ROCHE-1307500

PATIENT
  Sex: Female
  Weight: 54.48 kg

DRUGS (2)
  1. HERCEPTIN [Suspect]
     Indication: BREAST CANCER
     Dosage: START DATE:SOME TIME IN 2004-2005, TOOK FOR 1 YEAR
     Route: 042
  2. HERCEPTIN [Suspect]
     Route: 065

REACTIONS (1)
  - Recurrent cancer [Not Recovered/Not Resolved]
